FAERS Safety Report 22936279 (Version 6)
Quarter: 2023Q4

REPORT INFORMATION
  Report Type: Spontaneous
  Country: US (occurrence: US)
  Receive Date: 20230912
  Receipt Date: 20231026
  Transmission Date: 20240110
  Serious: Yes (Other)
  Sender: FDA-Public Use
  Company Number: US-JNJFOC-20230905352

PATIENT
  Age: 46 Year
  Sex: Female
  Weight: 61.29 kg

DRUGS (5)
  1. SPRAVATO [Suspect]
     Active Substance: ESKETAMINE
     Indication: Depression
     Dates: start: 20230831, end: 20230831
  2. BUSPIRONE [Concomitant]
     Active Substance: BUSPIRONE HYDROCHLORIDE
     Indication: Anxiety
     Route: 048
     Dates: start: 202102
  3. DIAZEPAM [Concomitant]
     Active Substance: DIAZEPAM
     Indication: Anxiety
     Route: 048
     Dates: start: 202102
  4. TRAZODONE [Concomitant]
     Active Substance: TRAZODONE HYDROCHLORIDE
     Indication: Insomnia
     Dosage: 50 MG, 1-3 TABS AT NIGHT AS REQUIRED
     Route: 048
     Dates: start: 20211004
  5. DULOXETINE [Concomitant]
     Active Substance: DULOXETINE
     Indication: Depression
     Route: 048
     Dates: start: 20230821

REACTIONS (8)
  - Device issue [Recovered/Resolved]
  - Underdose [Unknown]
  - Feeling abnormal [Unknown]
  - Suicidal ideation [Unknown]
  - Surgery [Unknown]
  - Discomfort [Unknown]
  - Cough [Unknown]
  - Retching [Unknown]

NARRATIVE: CASE EVENT DATE: 20230101
